FAERS Safety Report 8610503-1 (Version None)
Quarter: 2012Q3

REPORT INFORMATION
  Report Type: 
  Country: None (occurrence: None)
  Receive Date: 20120822
  Receipt Date: 20120816
  Transmission Date: 20120928
  Serious: Yes (Disabling)
  Sender: FDA-Public Use
  Company Number: US-CELGENEUS-163-21880-12080634

PATIENT
  Sex: Male

DRUGS (6)
  1. REVLIMID [Suspect]
     Dosage: 25 MILLIGRAM
     Route: 048
     Dates: start: 20090114
  2. CARVEDILOL [Concomitant]
     Route: 065
     Dates: start: 20030101
  3. REVLIMID [Suspect]
     Indication: MULTIPLE MYELOMA
     Dosage: 25 MILLIGRAM
     Route: 048
     Dates: start: 20081118
  4. REVLIMID [Suspect]
     Dosage: 5 MILLIGRAM
     Route: 048
     Dates: start: 20100301
  5. NORVASC [Concomitant]
     Route: 065
     Dates: start: 20030101
  6. ZOCOR [Concomitant]
     Route: 065
     Dates: start: 20030101

REACTIONS (1)
  - ARRHYTHMIA [None]
